FAERS Safety Report 4560839-9 (Version None)
Quarter: 2005Q1

REPORT INFORMATION
  Report Type: 
  Country: None (occurrence: None)
  Receive Date: 20050121
  Receipt Date: 20050104
  Transmission Date: 20050727
  Serious: Yes (Other)
  Sender: FDA-Public Use
  Company Number: 2005-00034

PATIENT

DRUGS (2)
  1. INTEGRILIN [Suspect]
     Indication: ACUTE CORONARY SYNDROME
  2. PLAVIX [Suspect]

REACTIONS (2)
  - CORONARY ARTERY RESTENOSIS [None]
  - STENT OCCLUSION [None]
